FAERS Safety Report 10158052 (Version 3)
Quarter: 2014Q3

REPORT INFORMATION
  Report Type: Report from Study
  Country: SK (occurrence: SK)
  Receive Date: 20140507
  Receipt Date: 20140902
  Transmission Date: 20150326
  Serious: Yes (Hospitalization)
  Sender: FDA-Public Use
  Company Number: SK-ASTRAZENECA-2014SE03738

PATIENT
  Age: 26198 Day
  Sex: Male
  Weight: 70 kg

DRUGS (3)
  1. ENELBIN RET [Concomitant]
     Indication: PERIPHERAL ISCHAEMIA
     Route: 048
     Dates: start: 1998
  2. DIROTON [Concomitant]
     Indication: ESSENTIAL HYPERTENSION
     Route: 048
     Dates: start: 1993
  3. AZD6140 [Suspect]
     Active Substance: TICAGRELOR
     Indication: PERIPHERAL ARTERIAL OCCLUSIVE DISEASE
     Route: 048
     Dates: start: 20130913, end: 20140101

REACTIONS (1)
  - Gastrointestinal disorder [Recovered/Resolved]

NARRATIVE: CASE EVENT DATE: 20131125
